FAERS Safety Report 10797280 (Version 1)
Quarter: 2015Q1

REPORT INFORMATION
  Report Type: Spontaneous
  Country: GB (occurrence: GB)
  Receive Date: 20150216
  Receipt Date: 20150216
  Transmission Date: 20150721
  Serious: Yes (Other)
  Sender: FDA-Public Use
  Company Number: GB-ASTELLAS-2015US004607

PATIENT
  Age: 48 Year
  Sex: Male

DRUGS (2)
  1. AMBISOME [Suspect]
     Active Substance: AMPHOTERICIN B
     Indication: SEPSIS
     Dosage: UNK, UNKNOWN FREQ.
     Route: 042
  2. METRONIDAZOLE. [Suspect]
     Active Substance: METRONIDAZOLE
     Indication: SEPSIS
     Dosage: UNK, UNKNOWN FREQ.
     Route: 042

REACTIONS (3)
  - Drug eruption [Recovered/Resolved]
  - Skin exfoliation [Recovered/Resolved]
  - Oral mucosal exfoliation [Recovered/Resolved]
